FAERS Safety Report 23686806 (Version 1)
Quarter: 2024Q1

REPORT INFORMATION
  Report Type: Report from Study
  Country: US (occurrence: US)
  Receive Date: 20240329
  Receipt Date: 20240329
  Transmission Date: 20240410
  Serious: Yes (Hospitalization, Other)
  Sender: FDA-Public Use
  Company Number: US-BAYER-2024A040743

PATIENT
  Age: 74 Year
  Sex: Male

DRUGS (2)
  1. STIVARGA [Suspect]
     Active Substance: REGORAFENIB
     Dosage: 80 MG, QD
     Dates: start: 20240307, end: 20240313
  2. STIVARGA [Suspect]
     Active Substance: REGORAFENIB
     Dosage: 120 MG, QD
     Dates: start: 20240313, end: 20240318

REACTIONS (5)
  - Gait inability [Unknown]
  - Hospitalisation [Not Recovered/Not Resolved]
  - Aphonia [Unknown]
  - Balance disorder [Unknown]
  - Off label use [None]

NARRATIVE: CASE EVENT DATE: 20240307
